FAERS Safety Report 8967722 (Version 1)
Quarter: 2012Q4

REPORT INFORMATION
  Report Type: Spontaneous
  Country: JP (occurrence: None)
  Receive Date: 20121207
  Receipt Date: 20121207
  Transmission Date: 20130627
  Serious: Yes (Other)
  Sender: FDA-Public Use
  Company Number: 2012P1066088

PATIENT
  Age: 56 Year
  Sex: Female

DRUGS (18)
  1. ETHAMBUTOL [Suspect]
     Indication: PULMONARY TUBERCULOSIS
     Dosage: 06/04/2010  -  07/18/2010
     Dates: start: 20100604, end: 20100718
  2. ETHAMBUTOL [Suspect]
     Indication: PULMONARY TUBERCULOSIS
     Dosage: 08/--/2010  -  10/04/2010
     Dates: start: 201008, end: 20101004
  3. ETHAMBUTOL [Suspect]
     Indication: PULMONARY TUBERCULOSIS
     Dosage: 10/--/2010  -  12/15/2010
     Dates: start: 201010, end: 20101215
  4. RIFAMPIN [Suspect]
     Indication: PULMONARY TUBERCULOSIS
     Dosage: 06/04/2010  -  07/18/2010
     Dates: start: 20100604, end: 20100718
  5. RIFAMPIN [Suspect]
     Indication: PULMONARY TUBERCULOSIS
     Dosage: 08/03/2010  -  08/03/2010
     Dates: start: 20100803, end: 20100803
  6. RIFAMPIN [Suspect]
     Indication: PULMONARY TUBERCULOSIS
     Dosage: 08/23/2010  -  09/04/2010
     Dates: start: 20100823, end: 20100904
  7. LEVOFLOXACIN [Suspect]
     Indication: PULMONARY TUBERCULOSIS
     Dosage: 06/04/2010  -  07/18/2010
     Dates: start: 20100604, end: 20100718
  8. LEVOFLOXACIN [Suspect]
     Indication: PULMONARY TUBERCULOSIS
     Dosage: 08/--/2010  -  10/04/2010
     Dates: start: 201008, end: 20101004
  9. LEVOFLOXACIN [Suspect]
     Indication: PULMONARY TUBERCULOSIS
     Dosage: 10/--/2010  -  12/15/2010
     Dates: start: 201010, end: 20101215
  10. ISONIAZID [Suspect]
     Indication: PULMONARY TUBERCULOSIS
     Dosage: 09/08/2010  -  10/04/2010
     Dates: start: 20100908, end: 20101004
  11. ISONIAZID [Suspect]
     Indication: PULMONARY TUBERCULOSIS
     Dosage: 10/12/2010  -  12/15/2010
     Dates: start: 20101012, end: 20101215
  12. STREPTOMYCIN [Suspect]
     Indication: PULMONARY TUBERCULOSIS
     Dosage: 06/04/2010  -  07/18/2010
     Dates: start: 20100604, end: 20100718
  13. STREPTOMYCIN [Suspect]
     Indication: PULMONARY TUBERCULOSIS
     Dosage: 08/03/2010  -  08/03/2010
     Dates: start: 20100803, end: 20100803
  14. STREPTOMYCIN [Suspect]
     Indication: PULMONARY TUBERCULOSIS
     Dosage: 08/--/2010  -  10/04/2010
     Dates: start: 201008, end: 20101004
  15. STREPTOMYCIN [Suspect]
     Indication: PULMONARY TUBERCULOSIS
     Dosage: 10/--/2010  -  10/--/2010
     Dates: start: 201010, end: 201010
  16. SALAZOSULFAPYRIDINE [Concomitant]
  17. METHOTREXATE [Concomitant]
  18. PREDNISOLONE [Concomitant]

REACTIONS (2)
  - Drug reaction with eosinophilia and systemic symptoms [None]
  - Alopecia [None]
